FAERS Safety Report 10655209 (Version 1)
Quarter: 2014Q4

REPORT INFORMATION
  Report Type: Spontaneous
  Country: IT (occurrence: IT)
  Receive Date: 20141216
  Receipt Date: 20141216
  Transmission Date: 20150529
  Serious: Yes (Other)
  Sender: FDA-Public Use
  Company Number: IT-ACTAVIS-2014-26655

PATIENT
  Age: 72 Year
  Sex: Male

DRUGS (5)
  1. IRINOTECAN (UNKNOWN) [Suspect]
     Active Substance: IRINOTECAN
     Indication: COLON CANCER
     Dosage: 230 MG, CYCLICAL
     Route: 042
     Dates: start: 20140922, end: 20141104
  2. CAPECITABINE. [Suspect]
     Active Substance: CAPECITABINE
     Indication: COLON CANCER
     Dosage: 3000 MG, CYCLICAL
     Route: 048
     Dates: start: 20140922, end: 20141106
  3. CAPECITABINE. [Suspect]
     Active Substance: CAPECITABINE
     Dosage: 300 MG, CYCLICAL
     Route: 048
     Dates: start: 20140922, end: 20141106
  4. ZOFRAN                             /00955301/ [Concomitant]
     Active Substance: ONDANSETRON HYDROCHLORIDE
     Indication: PREMEDICATION
     Dosage: 8 MG, UNKNOWN
     Route: 042
     Dates: start: 20140922, end: 20141104
  5. AVASTIN [Suspect]
     Active Substance: BEVACIZUMAB
     Indication: COLON CANCER
     Dosage: 325 MG, CYCLICAL
     Route: 042
     Dates: start: 20140922, end: 20141104

REACTIONS (4)
  - Thrombocytopenia [Unknown]
  - Retching [Recovering/Resolving]
  - Diarrhoea [Recovering/Resolving]
  - Decreased appetite [Recovering/Resolving]

NARRATIVE: CASE EVENT DATE: 20141106
